FAERS Safety Report 7726816-1 (Version None)
Quarter: 2011Q3

REPORT INFORMATION
  Report Type: 
  Country: None (occurrence: None)
  Receive Date: 20110902
  Receipt Date: 20110824
  Transmission Date: 20111222
  Serious: Yes (Other)
  Sender: FDA-Public Use
  Company Number: FR-GLAXOSMITHKLINE-B0741821A

PATIENT
  Sex: Male

DRUGS (2)
  1. ZOVIRAX [Suspect]
     Indication: HERPES ZOSTER
     Route: 042
     Dates: start: 20110303, end: 20110401
  2. PIPERACILLIN AND TAZOBACTAM [Suspect]
     Indication: LUNG DISORDER
     Route: 042
     Dates: start: 20110318, end: 20110329

REACTIONS (7)
  - CONVULSION [None]
  - DISTURBANCE IN ATTENTION [None]
  - TREMOR [None]
  - LOSS OF CONSCIOUSNESS [None]
  - ENCEPHALOPATHY [None]
  - SOMNOLENCE [None]
  - POSTICTAL STATE [None]
